FAERS Safety Report 23452481 (Version 1)
Quarter: 2024Q1

REPORT INFORMATION
  Report Type: Spontaneous
  Country: SE (occurrence: SE)
  Receive Date: 20240129
  Receipt Date: 20240129
  Transmission Date: 20240409
  Serious: Yes (Hospitalization, Other)
  Sender: FDA-Public Use
  Company Number: None

PATIENT
  Age: 35 Year
  Sex: Female
  Weight: 44 kg

DRUGS (2)
  1. NUVARING [Suspect]
     Active Substance: ETHINYL ESTRADIOL\ETONOGESTREL
     Indication: Contraception
     Dosage: 1 RING DURING 3 WEEKS, 1 WEEK BREAK, FIRST DOSE
     Route: 067
     Dates: start: 20231215, end: 20240115
  2. NUVARING [Suspect]
     Active Substance: ETHINYL ESTRADIOL\ETONOGESTREL
     Indication: Dysmenorrhoea

REACTIONS (2)
  - Pulmonary embolism [Not Recovered/Not Resolved]
  - Painful respiration [Recovering/Resolving]

NARRATIVE: CASE EVENT DATE: 20240101
